FAERS Safety Report 7966246-0 (Version None)
Quarter: 2011Q4

REPORT INFORMATION
  Report Type: 
  Country: None (occurrence: None)
  Receive Date: 20111208
  Receipt Date: 20111130
  Transmission Date: 20120403
  Serious: Yes (Other)
  Sender: FDA-Public Use
  Company Number: PHHY2011JP105227

PATIENT
  Age: 50 Year
  Sex: Female

DRUGS (2)
  1. ZOLEDRONIC ACID [Suspect]
     Indication: MULTIPLE MYELOMA
  2. BORTEZOMIB [Suspect]
     Dosage: 1.3 MG/M2 ON DAYS 1, 4, 8, 11
     Route: 042

REACTIONS (3)
  - PYREXIA [None]
  - NEUROPATHY PERIPHERAL [None]
  - BLOOD ALKALINE PHOSPHATASE INCREASED [None]
